FAERS Safety Report 7800214-4 (Version None)
Quarter: 2011Q4

REPORT INFORMATION
  Report Type: 
  Country: None (occurrence: None)
  Receive Date: 20111006
  Receipt Date: 20110929
  Transmission Date: 20120403
  Serious: Yes (Disabling)
  Sender: FDA-Public Use
  Company Number: US-CEPHALON-2011005182

PATIENT
  Sex: Female
  Weight: 73 kg

DRUGS (4)
  1. FENTANYL [Concomitant]
     Dosage: 100 MCG/HR
     Dates: start: 20060101
  2. ZOLOFT [Concomitant]
     Dates: start: 20110301
  3. PRILOSEC [Concomitant]
  4. PROVIGIL [Suspect]
     Indication: SOMNOLENCE
     Route: 048
     Dates: start: 20110701

REACTIONS (3)
  - TIBIA FRACTURE [None]
  - ACCIDENT AT HOME [None]
  - DRUG INEFFECTIVE FOR UNAPPROVED INDICATION [None]
